FAERS Safety Report 17482765 (Version 1)
Quarter: 2020Q1

REPORT INFORMATION
  Report Type: Spontaneous
  Country: US (occurrence: US)
  Receive Date: 20200302
  Receipt Date: 20200302
  Transmission Date: 20200409
  Serious: No
  Sender: FDA-Public Use
  Company Number: NVSC2020US057685

PATIENT
  Age: 55 Year
  Sex: Male

DRUGS (3)
  1. BETAMETHASONE. [Suspect]
     Active Substance: BETAMETHASONE
     Indication: PHOTOSENSITIVITY REACTION
     Dosage: UNK
     Route: 061
  2. FLUTICASONE. [Suspect]
     Active Substance: FLUTICASONE
     Indication: PHOTOSENSITIVITY REACTION
     Dosage: UNK
     Route: 061
  3. PREDNISONE. [Suspect]
     Active Substance: PREDNISONE
     Indication: PHOTOSENSITIVITY REACTION
     Dosage: 40 MG TAPERED TO 10 MG
     Route: 048

REACTIONS (1)
  - Drug ineffective [Unknown]
